FAERS Safety Report 5819893-6 (Version None)
Quarter: 2008Q3

REPORT INFORMATION
  Report Type: 
  Country: None (occurrence: None)
  Receive Date: 20080723
  Receipt Date: 20080711
  Transmission Date: 20090109
  Serious: Yes (Other)
  Sender: FDA-Public Use
  Company Number: GB-MERCK-0201GBR00251B1

PATIENT
  Age: 0 Day
  Sex: Male
  Weight: 4010 kg

DRUGS (8)
  1. SINGULAIR [Suspect]
     Route: 064
     Dates: start: 19990601, end: 20011001
  2. FLUTICASONE PROPIONATE [Concomitant]
     Route: 064
  3. SALMETEROL [Concomitant]
     Route: 064
  4. ALBUTEROL [Concomitant]
     Route: 064
  5. PREDNISOLONE [Concomitant]
     Route: 064
  6. PREDNISOLONE [Concomitant]
     Route: 064
  7. PREDNISOLONE [Concomitant]
     Route: 064
  8. PREDNISOLONE [Concomitant]
     Route: 064

REACTIONS (1)
  - FOETAL DISTRESS SYNDROME [None]
